FAERS Safety Report 6141406-2 (Version None)
Quarter: 2009Q2

REPORT INFORMATION
  Report Type: 
  Country: None (occurrence: None)
  Receive Date: 20090401
  Receipt Date: 20090401
  Transmission Date: 20091009
  Serious: Yes (Other)
  Sender: FDA-Public Use
  Company Number: None

PATIENT
  Age: 37 Year
  Sex: Female
  Weight: 56.6996 kg

DRUGS (1)
  1. SINGULAIR [Suspect]
     Indication: SINUS DISORDER
     Dosage: 1 TABLET ONCE/DAY/NIGHTTIME PO
     Route: 048

REACTIONS (2)
  - NAUSEA [None]
  - VAGINAL HAEMORRHAGE [None]
